FAERS Safety Report 9414517 (Version 1)
Quarter: 2013Q3

REPORT INFORMATION
  Report Type: Spontaneous
  Country: ES (occurrence: ES)
  Receive Date: 20130723
  Receipt Date: 20130723
  Transmission Date: 20140515
  Serious: Yes (Hospitalization)
  Sender: FDA-Public Use
  Company Number: ES-SANOFI-AVENTIS-2013SA071747

PATIENT
  Age: 59 Year
  Sex: Female

DRUGS (6)
  1. SEGURIL [Suspect]
     Indication: RENAL FAILURE CHRONIC
     Route: 048
     Dates: start: 20091217, end: 20100215
  2. HYDRALAZINE [Interacting]
     Indication: HYPERTENSION
     Route: 048
     Dates: start: 20090723, end: 20100215
  3. COROPRES [Interacting]
     Indication: HYPERTENSION
     Dosage: STRENGTH: 6.25 MG
     Route: 048
     Dates: start: 20090723, end: 20100215
  4. OMEPRAZOLE [Concomitant]
     Indication: PROPHYLAXIS
     Route: 048
  5. RAPAMUNE [Concomitant]
     Indication: LIVER TRANSPLANT
     Route: 048
     Dates: start: 20100127, end: 20100223
  6. FERROCUR [Concomitant]
     Indication: ANAEMIA
     Route: 048
     Dates: start: 20100201, end: 20100207

REACTIONS (2)
  - Renal failure acute [Recovered/Resolved]
  - Drug interaction [Unknown]
